FAERS Safety Report 7149508-9 (Version None)
Quarter: 2010Q4

REPORT INFORMATION
  Report Type: 
  Country: None (occurrence: None)
  Receive Date: 20101209
  Receipt Date: 20101129
  Transmission Date: 20110411
  Serious: Yes (Other)
  Sender: FDA-Public Use
  Company Number: PHHY2010JP78774

PATIENT
  Sex: Female

DRUGS (3)
  1. ZOMETA [Suspect]
     Indication: METASTASES TO BONE
     Dosage: UNK
     Dates: start: 20070701
  2. ZOMETA [Suspect]
     Dosage: UNK
     Dates: start: 20080201
  3. ALENDRONATE SODIUM [Suspect]
     Indication: METASTASES TO BONE
     Dosage: UNK
     Route: 048
     Dates: start: 20011201, end: 20070701

REACTIONS (6)
  - DENTAL DISCOMFORT [None]
  - HYPOAESTHESIA ORAL [None]
  - OSTEONECROSIS OF JAW [None]
  - PRIMARY SEQUESTRUM [None]
  - TOOTH EXTRACTION [None]
  - UPPER-AIRWAY COUGH SYNDROME [None]
